FAERS Safety Report 12205738 (Version 1)
Quarter: 2016Q1

REPORT INFORMATION
  Report Type: Spontaneous
  Country: AE (occurrence: AE)
  Receive Date: 20160323
  Receipt Date: 20160323
  Transmission Date: 20160526
  Serious: Yes (Death)
  Sender: FDA-Public Use
  Company Number: AE-MYLANLABS-2016M1012388

PATIENT

DRUGS (4)
  1. AZITHROMYCIN ANHYDROUS. [Suspect]
     Active Substance: AZITHROMYCIN ANHYDROUS
     Indication: MIDDLE EAST RESPIRATORY SYNDROME
     Route: 065
  2. CEFTRIAXONE. [Suspect]
     Active Substance: CEFTRIAXONE
     Indication: MIDDLE EAST RESPIRATORY SYNDROME
     Route: 065
  3. OSELTAMIVIR [Suspect]
     Active Substance: OSELTAMIVIR
     Indication: MIDDLE EAST RESPIRATORY SYNDROME
     Route: 065
  4. VANCOMYCIN [Suspect]
     Active Substance: VANCOMYCIN
     Indication: MIDDLE EAST RESPIRATORY SYNDROME
     Route: 065

REACTIONS (4)
  - Normal newborn [Recovered/Resolved]
  - Middle East respiratory syndrome [Fatal]
  - Maternal exposure during pregnancy [Recovered/Resolved]
  - Corona virus infection [Fatal]
